FAERS Safety Report 10687880 (Version 1)
Quarter: 2014Q4

REPORT INFORMATION
  Report Type: Spontaneous
  Country: US (occurrence: None)
  Receive Date: 20141231
  Receipt Date: 20141231
  Transmission Date: 20150529
  Serious: Yes (Life-Threatening, Hospitalization)
  Sender: FDA-Public Use
  Company Number: None

PATIENT
  Age: 49 Year
  Sex: Male
  Weight: 131 kg

DRUGS (6)
  1. PANTOPRAZOLE [Concomitant]
     Active Substance: PANTOPRAZOLE SODIUM
  2. AMOXICILLIN. [Concomitant]
     Active Substance: AMOXICILLIN
  3. CODEINE/GUAIFENESIN [Concomitant]
     Active Substance: CODEINE\GUAIFENESIN
  4. VENTOLIN HFA [Concomitant]
     Active Substance: ALBUTEROL SULFATE
  5. AZITHROMYCIN [Suspect]
     Active Substance: AZITHROMYCIN ANHYDROUS
     Indication: BRONCHITIS
     Dosage: 2 X 1, THEN 1 DAILY X 4
     Route: 048
     Dates: start: 20141227, end: 20141228
  6. LOSARTAN [Concomitant]
     Active Substance: LOSARTAN

REACTIONS (1)
  - Cardiac arrest [None]

NARRATIVE: CASE EVENT DATE: 20141228
